FAERS Safety Report 11265154 (Version 1)
Quarter: 2015Q3

REPORT INFORMATION
  Report Type: Spontaneous
  Country: ES (occurrence: ES)
  Receive Date: 20150713
  Receipt Date: 20150713
  Transmission Date: 20151125
  Serious: Yes (Hospitalization, Other)
  Sender: FDA-Public Use
  Company Number: ES-SHIRE-ES201507229

PATIENT
  Sex: Male
  Weight: 70 kg

DRUGS (3)
  1. XAGRID [Suspect]
     Active Substance: ANAGRELIDE HYDROCHLORIDE
     Indication: THROMBOCYTOPENIA
     Dosage: 2.5 MG, UNKNOWN (PER DAY)
     Route: 048
     Dates: start: 20090512, end: 20150512
  2. XAGRID [Suspect]
     Active Substance: ANAGRELIDE HYDROCHLORIDE
     Indication: MYELOPROLIFERATIVE DISORDER
  3. DOXYCYCLINE. [Concomitant]
     Active Substance: DOXYCYCLINE
     Indication: ROSACEA
     Dosage: 100 MG, 1X/DAY:QD
     Route: 065

REACTIONS (3)
  - Cardiac failure [Recovered/Resolved with Sequelae]
  - Left ventricular dysfunction [Recovered/Resolved with Sequelae]
  - Congestive cardiomyopathy [Recovered/Resolved with Sequelae]

NARRATIVE: CASE EVENT DATE: 2015
